FAERS Safety Report 19821230 (Version 1)
Quarter: 2021Q3

REPORT INFORMATION
  Report Type: Spontaneous
  Country: US (occurrence: US)
  Receive Date: 20210913
  Receipt Date: 20210913
  Transmission Date: 20211014
  Serious: Yes (Hospitalization)
  Sender: FDA-Public Use
  Company Number: None

PATIENT
  Age: 43 Year
  Sex: Male
  Weight: 107.1 kg

DRUGS (2)
  1. REGEN?COV [Suspect]
     Active Substance: CASIRIVIMAB\IMDEVIMAB
     Indication: COVID-19
     Dosage: ?          OTHER FREQUENCY:ONCE;?
     Route: 041
     Dates: start: 20210904, end: 20210904
  2. MODERNA COVID?19 VACCINE [Suspect]
     Active Substance: CX-024414

REACTIONS (11)
  - Pneumonia [None]
  - COVID-19 pneumonia [None]
  - Acute respiratory failure [None]
  - Fatigue [None]
  - COVID-19 [None]
  - Asthenia [None]
  - Oxygen saturation decreased [None]
  - Dyspnoea [None]
  - White blood cell count increased [None]
  - Procalcitonin increased [None]
  - Respiratory acidosis [None]

NARRATIVE: CASE EVENT DATE: 20210908
